FAERS Safety Report 18926588 (Version 2)
Quarter: 2021Q3

REPORT INFORMATION
  Report Type: Report from Study
  Country: US (occurrence: US)
  Receive Date: 20210223
  Receipt Date: 20210702
  Transmission Date: 20211014
  Serious: Yes (Other)
  Sender: FDA-Public Use
  Company Number: US-TAKEDA-2017BLT003949

PATIENT
  Age: 57 Year
  Sex: Female

DRUGS (1)
  1. CUVITRU [Suspect]
     Active Substance: HUMAN IMMUNOGLOBULIN G
     Indication: PRIMARY IMMUNODEFICIENCY SYNDROME
     Dosage: UNK
     Route: 065
     Dates: start: 201702

REACTIONS (7)
  - Joint effusion [Unknown]
  - Aphasia [Unknown]
  - Arthropathy [Unknown]
  - Immunoglobulins abnormal [Unknown]
  - Osteoarthritis [Unknown]
  - Inappropriate schedule of product administration [Unknown]
  - Accident [Unknown]

NARRATIVE: CASE EVENT DATE: 20170503
